FAERS Safety Report 25873063 (Version 2)
Quarter: 2025Q4

REPORT INFORMATION
  Report Type: Spontaneous
  Country: US (occurrence: None)
  Receive Date: 20251002
  Receipt Date: 20251112
  Transmission Date: 20260119
  Serious: Yes (Other)
  Sender: AMERICAN REGENT
  Company Number: US-AMERICAN REGENT INC-2025003661

PATIENT
  Age: 31 Year
  Sex: Female
  Weight: 144 kg

DRUGS (7)
  1. VENOFER [Suspect]
     Active Substance: IRON SUCROSE
     Indication: Product used for unknown indication
     Dosage: UNK
     Route: 065
     Dates: start: 20250825, end: 20250825
  2. VENOFER [Suspect]
     Active Substance: IRON SUCROSE
     Dosage: UNK
     Route: 065
     Dates: start: 20250909, end: 20250909
  3. VENOFER [Suspect]
     Active Substance: IRON SUCROSE
     Dosage: UNK
     Route: 065
  4. MIRCERA [Suspect]
     Active Substance: METHOXY POLYETHYLENE GLYCOL-EPOETIN BETA
     Indication: Nephrogenic anaemia
     Dosage: 100 MICROGRAM (EVERY 2 WEEKS)
     Route: 040
     Dates: start: 20250825, end: 20250923
  5. HECTOROL [Suspect]
     Active Substance: DOXERCALCIFEROL
     Indication: Product used for unknown indication
     Dosage: UNK
     Route: 065
     Dates: start: 20250825, end: 20250825
  6. HECTOROL [Suspect]
     Active Substance: DOXERCALCIFEROL
     Dosage: UNK
     Route: 065
     Dates: start: 20250909, end: 20250909
  7. HECTOROL [Suspect]
     Active Substance: DOXERCALCIFEROL
     Dosage: UNK
     Route: 065

REACTIONS (1)
  - Drug hypersensitivity [Recovered/Resolved]

NARRATIVE: CASE EVENT DATE: 20250923
